FAERS Safety Report 24763431 (Version 1)
Quarter: 2024Q4

REPORT INFORMATION
  Report Type: Spontaneous
  Country: IT (occurrence: IT)
  Receive Date: 20241222
  Receipt Date: 20241222
  Transmission Date: 20250114
  Serious: Yes (Death, Other)
  Sender: XELLIA PHARMACEUTICALS
  Company Number: IT-EMA-DD-20241114-7482699-041910

PATIENT
  Age: 67 Year
  Sex: Female

DRUGS (5)
  1. DAPTOMYCIN [Suspect]
     Active Substance: DAPTOMYCIN
     Indication: Septic shock
  2. COTRIMOXAZOLE [Suspect]
     Active Substance: SULFAMETHOXAZOLE\TRIMETHOPRIM
     Indication: Bacterial infection
  3. LEVOFLOXACIN [Suspect]
     Active Substance: LEVOFLOXACIN
     Indication: Bacterial infection
  4. MEROPENEM [Suspect]
     Active Substance: MEROPENEM
     Indication: Septic shock
  5. METRONIDAZOLE [Suspect]
     Active Substance: METRONIDAZOLE
     Indication: Bacterial infection

REACTIONS (4)
  - Pathogen resistance [Unknown]
  - Septic shock [Fatal]
  - Pericarditis [Fatal]
  - Multiple organ dysfunction syndrome [Fatal]
